FAERS Safety Report 17784719 (Version 1)
Quarter: 2020Q2

REPORT INFORMATION
  Report Type: Spontaneous
  Country: US (occurrence: US)
  Receive Date: 20200513
  Receipt Date: 20200513
  Transmission Date: 20200714
  Serious: No
  Sender: FDA-Public Use
  Company Number: US-009507513-2005USA002318

PATIENT
  Sex: Female

DRUGS (1)
  1. GANIRELIX ACETATE INJECTION [Suspect]
     Active Substance: GANIRELIX ACETATE
     Dosage: 250MCG/.5M, 250MCG ONCE DAILY
     Route: 058
     Dates: start: 201906

REACTIONS (2)
  - Pain in extremity [Unknown]
  - Migraine [Unknown]
